FAERS Safety Report 8409207-X (Version None)
Quarter: 2012Q2

REPORT INFORMATION
  Report Type: 
  Country: None (occurrence: None)
  Receive Date: 20120604
  Receipt Date: 20120522
  Transmission Date: 20120825
  Serious: Yes (Other)
  Sender: FDA-Public Use
  Company Number: JP-FRI-1000029233

PATIENT
  Sex: Female
  Weight: 42 kg

DRUGS (2)
  1. RHYTHMY [Suspect]
     Route: 048
  2. LEXAPRO [Suspect]
     Indication: DEPRESSION
     Dosage: 10 MG
     Route: 048
     Dates: start: 20120309, end: 20120309

REACTIONS (4)
  - CONVULSION [None]
  - TREMOR [None]
  - DYSPHONIA [None]
  - VOMITING [None]
